FAERS Safety Report 21792163 (Version 1)
Quarter: 2022Q4

REPORT INFORMATION
  Report Type: Report from Study
  Country: CN (occurrence: CN)
  Receive Date: 20221229
  Receipt Date: 20221229
  Transmission Date: 20230112
  Serious: Yes (Death, Hospitalization)
  Sender: FDA-Public Use
  Company Number: CN-PHARMACOVIGILANCE-CN-KAD-22-00653

PATIENT
  Age: 31 Year
  Sex: Male
  Weight: 40 kg

DRUGS (9)
  1. BELUMOSUDIL MESYLATE [Suspect]
     Active Substance: BELUMOSUDIL MESYLATE
     Indication: Chronic graft versus host disease
     Dosage: 200 MG, QD
     Route: 048
     Dates: start: 20210929, end: 20220706
  2. TACROLIMUS [Concomitant]
     Active Substance: TACROLIMUS
     Indication: Chronic graft versus host disease
     Dosage: 0.5 MILLIGRAM, QD
     Route: 048
     Dates: start: 20180306
  3. PREDNISONE [Concomitant]
     Active Substance: PREDNISONE
     Indication: Chronic graft versus host disease
     Dosage: 20 MILLIGRAM, QD
     Route: 048
     Dates: start: 20220601
  4. AZITHROMYCIN [Concomitant]
     Active Substance: AZITHROMYCIN
     Indication: Chronic graft versus host disease
     Dosage: 0.5 GRAM, QD
     Route: 048
     Dates: start: 20220518
  5. MONTELUKAST SODIUM [Concomitant]
     Active Substance: MONTELUKAST SODIUM
     Indication: Respiratory tract infection
     Dosage: 10 MILLIGRAM, QD, EVERY NIGHT
     Route: 048
     Dates: start: 20211125
  6. ACETYLCYSTEINE [Concomitant]
     Active Substance: ACETYLCYSTEINE
     Indication: Respiratory tract infection
     Dosage: 0.6 GRAM, BID
     Route: 048
     Dates: start: 20211222
  7. VITAMIN AD [Concomitant]
     Active Substance: PETROLATUM
     Indication: Supportive care
     Dosage: 2000 INTERNATIONAL UNIT, BID
     Route: 048
     Dates: start: 20220120
  8. ENTERAL NUTRITIONAL POWDER (TP) [Concomitant]
     Indication: Weight decreased
     Dosage: 50 G, TIW
     Route: 048
     Dates: start: 20220518
  9. MEGESTROL [Concomitant]
     Active Substance: MEGESTROL
     Indication: Malnutrition
     Dosage: 40 MILLIGRAM, BID
     Route: 048
     Dates: start: 20220601

REACTIONS (1)
  - Pneumonia [Fatal]

NARRATIVE: CASE EVENT DATE: 20220629
